FAERS Safety Report 9335316 (Version 2)
Quarter: 2013Q2

REPORT INFORMATION
  Report Type: Spontaneous
  Country: BR (occurrence: BR)
  Receive Date: 20130606
  Receipt Date: 20130611
  Transmission Date: 20140414
  Serious: Yes (Other)
  Sender: FDA-Public Use
  Company Number: BR-JNJFOC-20130517587

PATIENT
  Sex: Female
  Weight: 8.6 kg

DRUGS (1)
  1. TYLENOL GOTAS [Suspect]
     Indication: PYREXIA
     Dosage: 8 DROPS
     Route: 048
     Dates: start: 20130518, end: 20130521

REACTIONS (4)
  - Pertussis [Unknown]
  - Papule [Recovered/Resolved]
  - Product dropper issue [Unknown]
  - Product quality issue [None]
